FAERS Safety Report 15248640 (Version 1)
Quarter: 2018Q3

REPORT INFORMATION
  Report Type: Spontaneous
  Country: US (occurrence: US)
  Receive Date: 20180716
  Receipt Date: 20180716
  Transmission Date: 20181010
  Serious: No
  Sender: FDA-Public Use
  Company Number: None

PATIENT
  Age: 81 Year
  Sex: Female

DRUGS (1)
  1. MAVYRET [Suspect]
     Active Substance: GLECAPREVIR\PIBRENTASVIR
     Dates: start: 20180716, end: 20180716

REACTIONS (8)
  - Vomiting [None]
  - Nausea [None]
  - Weight decreased [None]
  - Influenza like illness [None]
  - Fall [None]
  - Urinary tract infection [None]
  - Tympanic membrane perforation [None]
  - Otitis media [None]

NARRATIVE: CASE EVENT DATE: 20180716
